FAERS Safety Report 16148916 (Version 1)
Quarter: 2019Q2

REPORT INFORMATION
  Report Type: Spontaneous
  Country: US (occurrence: US)
  Receive Date: 20190402
  Receipt Date: 20190402
  Transmission Date: 20190711
  Serious: No
  Sender: FDA-Public Use
  Company Number: US-009507513-1903USA010195

PATIENT
  Sex: Female

DRUGS (1)
  1. NEXPLANON [Suspect]
     Active Substance: ETONOGESTREL
     Dosage: 1 IMPLANT

REACTIONS (6)
  - Device breakage [Unknown]
  - Tissue injury [Unknown]
  - Complication of device insertion [Unknown]
  - Product physical issue [Unknown]
  - Product quality issue [Unknown]
  - Device expulsion [Unknown]

NARRATIVE: CASE EVENT DATE: 20190321
